FAERS Safety Report 6389599-6 (Version None)
Quarter: 2009Q4

REPORT INFORMATION
  Report Type: 
  Country: None (occurrence: None)
  Receive Date: 20091006
  Receipt Date: 20070727
  Transmission Date: 20100525
  Serious: Yes (Other)
  Sender: FDA-Public Use
  Company Number: US-ASTRAZENECA-2006UW24121

PATIENT
  Age: 38 Year
  Sex: Female
  Weight: 116.1 kg

DRUGS (15)
  1. SEROQUEL [Suspect]
     Indication: DEPRESSION
     Dosage: 25-50
     Route: 048
     Dates: start: 19970101, end: 20010101
  2. SEROQUEL [Suspect]
     Dosage: STRENGTH 25MG, 200MG, 300MG DOSE 25-300 DAILY
     Route: 048
     Dates: start: 20020506
  3. ABILIFY [Suspect]
  4. ZYPREXA [Suspect]
     Dosage: STRENGTH 5MG, 10MG DOSE 5-10MG AT NIGHT
     Route: 048
     Dates: start: 19981221
  5. GEODON [Concomitant]
  6. REMERON [Concomitant]
     Indication: DEPRESSION
     Dosage: STRENGTH 30MG, 45MG DOSE 45-60MG DAILY
     Route: 048
     Dates: start: 20020710
  7. DIOVAN [Concomitant]
     Dosage: STRENGTH 80MG, 160MG DOSE 80-160MG DAILY
     Route: 048
     Dates: start: 20060202
  8. LIPITOR [Concomitant]
     Indication: BLOOD CHOLESTEROL
     Dosage: STRENGTH 10MG, 20MG DOSE 10-20 MG AT NIGHT
     Route: 048
     Dates: start: 20020802
  9. CYMBALTA [Concomitant]
     Dates: start: 20060202
  10. KLONOPIN [Concomitant]
     Indication: SEDATIVE THERAPY
     Dosage: STRENGTH 0.5MG, 1MG, 5MG DOSE 0.5-15MG DAILY
     Dates: start: 20000328
  11. KLONOPIN [Concomitant]
     Indication: PANIC ATTACK
     Dosage: STRENGTH 0.5MG, 1MG, 5MG DOSE 0.5-15MG DAILY
     Dates: start: 20000328
  12. TRAZODONE [Concomitant]
     Dates: start: 20060202
  13. NEURONTIN [Concomitant]
     Dosage: STRENGTH-300MG, 500MG. DOSE-300MG-1500MG DAILY
     Route: 048
     Dates: start: 20060302
  14. TRENTAL [Concomitant]
     Indication: PERIPHERAL VASCULAR DISORDER
     Route: 048
     Dates: start: 20020802
  15. WELLBUTRIN [Concomitant]
     Dates: start: 20000328

REACTIONS (8)
  - DIABETES MELLITUS [None]
  - GESTATIONAL DIABETES [None]
  - GLYCOSURIA [None]
  - NEUROLEPTIC MALIGNANT SYNDROME [None]
  - NEUROPATHY PERIPHERAL [None]
  - POLYNEUROPATHY [None]
  - TYPE 2 DIABETES MELLITUS [None]
  - VISION BLURRED [None]
